FAERS Safety Report 10023571 (Version 1)
Quarter: 2014Q1

REPORT INFORMATION
  Report Type: Spontaneous
  Country: US (occurrence: None)
  Receive Date: 20140319
  Receipt Date: 20140319
  Transmission Date: 20141002
  Serious: Yes (Hospitalization)
  Sender: FDA-Public Use
  Company Number: None

PATIENT
  Age: 43 Year
  Sex: Female
  Weight: 57.15 kg

DRUGS (1)
  1. LEVOFLOXACIN [Suspect]
     Indication: INFECTIOUS THYROIDITIS
     Dosage: 1 PILL
     Route: 048
     Dates: start: 20140303, end: 20140307

REACTIONS (1)
  - Stevens-Johnson syndrome [None]
